FAERS Safety Report 5087907-X (Version None)
Quarter: 2006Q3

REPORT INFORMATION
  Report Type: 
  Country: None (occurrence: None)
  Receive Date: 20060823
  Receipt Date: 20060823
  Transmission Date: 20061208
  Serious: No
  Sender: FDA-Public Use
  Company Number: None

PATIENT
  Age: 46 Year
  Sex: Female
  Weight: 75.2971 kg

DRUGS (1)
  1. OLANZAPINE [Suspect]
     Dosage: 20 MG 9 AM PO
     Route: 048

REACTIONS (1)
  - WEIGHT INCREASED [None]
